FAERS Safety Report 7358983-6 (Version None)
Quarter: 2011Q1

REPORT INFORMATION
  Report Type: 
  Country: None (occurrence: None)
  Receive Date: 20110317
  Receipt Date: 20090309
  Transmission Date: 20110831
  Serious: Yes (Hospitalization, Other)
  Sender: FDA-Public Use
  Company Number: US-BAYER-200915447NA

PATIENT
  Sex: Male
  Weight: 70.295 kg

DRUGS (20)
  1. ALDACTONE [Concomitant]
     Dosage: 50 MG, QID
     Route: 048
     Dates: start: 20030101
  2. SONATA [Concomitant]
     Indication: SLEEP DISORDER
     Dosage: 10 MG, QD
     Route: 048
     Dates: start: 20010525
  3. DIGOXIN [Concomitant]
     Indication: CARDIAC DISORDER
     Dosage: 0.25 MG, QD
     Route: 048
     Dates: start: 20000101
  4. RESTORIL [Concomitant]
     Indication: SLEEP DISORDER
     Dosage: 30 MG, QD
     Route: 048
     Dates: start: 20030101
  5. ATENOLOL [Concomitant]
     Dosage: 25 MG, QD
     Route: 048
     Dates: start: 20010101
  6. ANALGESICS [Concomitant]
     Dosage: UNK
     Route: 042
     Dates: start: 20030404, end: 20030404
  7. TRASYLOL [Suspect]
     Indication: HEART VALVE REPLACEMENT
     Dosage: UNK
     Route: 042
     Dates: start: 20030403, end: 20030404
  8. ATIVAN [Concomitant]
     Indication: ANXIETY
     Dosage: 0.5 MG EVERY 8 HRS AS NEEDED
     Route: 048
     Dates: start: 20030101
  9. HEPARIN [Concomitant]
     Dosage: 21,000 UNITS
     Route: 042
     Dates: start: 20030404, end: 20040404
  10. CRYOPRECIPITATES [Concomitant]
     Dosage: 200 ML, UNK
     Dates: start: 20030404, end: 20030404
  11. ADVIL LIQUI-GELS [Concomitant]
     Indication: PAIN
     Dosage: AS NEEDED
     Route: 048
  12. PROTAMINE SULFATE [Concomitant]
     Dosage: 500 MG, UNK
     Route: 042
     Dates: start: 20030404, end: 20030404
  13. LASIX [Concomitant]
     Indication: DIURETIC THERAPY
     Dosage: 20 MG, BID
     Route: 048
     Dates: start: 20030409
  14. RED BLOOD CELLS [Concomitant]
     Dosage: 1000 ML, UNK
     Dates: start: 20030404, end: 20030404
  15. PROTONIX [Concomitant]
     Indication: GASTRIC DISORDER
     Dosage: 40 MG, QD
     Route: 048
  16. PRILOSEC [Concomitant]
     Indication: GASTRIC DISORDER
     Dosage: 20 MG, QD
     Route: 048
     Dates: start: 20021210
  17. MANNITOL [Concomitant]
     Dosage: 125 MG, UNK
     Route: 042
     Dates: start: 20030404, end: 20030404
  18. PAPAVERIN [Concomitant]
     Dosage: 600 MG, UNK
     Route: 042
     Dates: start: 20030404, end: 20030404
  19. EPINEPHRINE [Concomitant]
     Dosage: 2.66 MCG/MIN DRIP
     Route: 042
     Dates: start: 20030404, end: 20030404
  20. CALCIUM CHLORIDE [Concomitant]
     Dosage: 1000 MG, UNK
     Route: 042
     Dates: start: 20030404, end: 20030404

REACTIONS (11)
  - PAIN [None]
  - INJURY [None]
  - UNEVALUABLE EVENT [None]
  - EMOTIONAL DISTRESS [None]
  - ANXIETY [None]
  - BLINDNESS UNILATERAL [None]
  - RENAL INJURY [None]
  - CEREBROVASCULAR ACCIDENT [None]
  - CEREBRAL HAEMORRHAGE [None]
  - DEPRESSION [None]
  - RENAL FAILURE ACUTE [None]
